FAERS Safety Report 17973503 (Version 2)
Quarter: 2020Q3

REPORT INFORMATION
  Report Type: Spontaneous
  Country: US (occurrence: US)
  Receive Date: 20200702
  Receipt Date: 20200806
  Transmission Date: 20201103
  Serious: No
  Sender: FDA-Public Use
  Company Number: US-BIOGEN-2020BI00879919

PATIENT
  Sex: Female

DRUGS (2)
  1. TECFIDERA [Suspect]
     Active Substance: DIMETHYL FUMARATE
     Dosage: MAINTENANCE DOSE
     Route: 065
     Dates: end: 20101231
  2. TECFIDERA [Suspect]
     Active Substance: DIMETHYL FUMARATE
     Indication: MULTIPLE SCLEROSIS
     Dosage: STARTING DOSE
     Route: 065
     Dates: start: 20140121

REACTIONS (6)
  - Memory impairment [Unknown]
  - Hypersensitivity [Unknown]
  - Frustration tolerance decreased [Unknown]
  - Rash [Recovered/Resolved]
  - Emotional distress [Unknown]
  - Hemiparesis [Unknown]

NARRATIVE: CASE EVENT DATE: 2014
